FAERS Safety Report 8998416 (Version 1)
Quarter: 2013Q1

REPORT INFORMATION
  Report Type: Report from Study
  Country: DK (occurrence: DK)
  Receive Date: 20130103
  Receipt Date: 20130103
  Transmission Date: 20140127
  Serious: Yes (Hospitalization)
  Sender: FDA-Public Use
  Company Number: DK-BAXTER-2012BAX028651

PATIENT
  Age: 52 Year
  Sex: Female
  Weight: 98 kg

DRUGS (19)
  1. SENDOXAN [Suspect]
     Indication: DIFFUSE LARGE B-CELL LYMPHOMA
     Route: 042
     Dates: start: 20101118
  2. SENDOXAN [Suspect]
     Route: 042
     Dates: start: 20101208
  3. SENDOXAN [Suspect]
     Route: 042
     Dates: start: 20101223
  4. DOXORUBICIN [Suspect]
     Indication: DIFFUSE LARGE B-CELL LYMPHOMA
     Route: 042
     Dates: start: 20101118
  5. DOXORUBICIN [Suspect]
     Route: 042
     Dates: start: 20101208
  6. DOXORUBICIN [Suspect]
     Route: 042
     Dates: start: 20101224
  7. VINCRISTINE [Suspect]
     Indication: DIFFUSE LARGE B-CELL LYMPHOMA
     Route: 042
     Dates: start: 20101118, end: 20101210
  8. RITUXIMAB [Suspect]
     Indication: DIFFUSE LARGE B-CELL LYMPHOMA
     Route: 042
     Dates: start: 20101118
  9. RITUXIMAB [Suspect]
     Route: 042
     Dates: start: 20101208
  10. RITUXIMAB [Suspect]
     Route: 042
     Dates: start: 20101223
  11. FILGRASTIM [Suspect]
     Indication: DIFFUSE LARGE B-CELL LYMPHOMA
     Route: 058
     Dates: start: 20101119
  12. FILGRASTIM [Suspect]
     Route: 058
     Dates: start: 20101208
  13. FILGRASTIM [Suspect]
     Route: 058
     Dates: start: 20101224
  14. PREDNISONE [Suspect]
     Indication: DIFFUSE LARGE B-CELL LYMPHOMA
     Route: 048
     Dates: start: 20101118
  15. PREDNISONE [Suspect]
     Route: 048
     Dates: start: 20101208
  16. PREDNISONE [Suspect]
     Route: 048
     Dates: start: 20101227
  17. METHOTREXATE [Concomitant]
     Indication: PRODUCT USED FOR UNKNOWN INDICATION
     Route: 065
     Dates: start: 20100827
  18. METHYLPREDNISOLONE [Concomitant]
     Indication: PRODUCT USED FOR UNKNOWN INDICATION
     Route: 065
     Dates: start: 20100827
  19. CYTARABINE [Concomitant]
     Indication: PRODUCT USED FOR UNKNOWN INDICATION
     Route: 065
     Dates: start: 20100930

REACTIONS (2)
  - Peripheral sensory neuropathy [Recovered/Resolved]
  - Peripheral sensory neuropathy [Not Recovered/Not Resolved]
